FAERS Safety Report 6939486-7 (Version None)
Quarter: 2010Q3

REPORT INFORMATION
  Report Type: 
  Country: None (occurrence: None)
  Receive Date: 20100819
  Receipt Date: 20100803
  Transmission Date: 20110219
  Serious: Yes (Death, Hospitalization)
  Sender: FDA-Public Use
  Company Number: BVT-000615

PATIENT
  Sex: Female

DRUGS (14)
  1. KINERET [Suspect]
     Indication: RHEUMATOID ARTHRITIS
     Dates: start: 20050101, end: 20050401
  2. METHOTREXATE [Suspect]
     Indication: RHEUMATOID ARTHRITIS
     Dosage: (ORAL)
     Route: 048
     Dates: start: 19960301, end: 20070918
  3. PREDNISONE [Suspect]
     Indication: RHEUMATOID ARTHRITIS
  4. RITUXIMAB (RITUXIMAB) [Suspect]
     Indication: RHEUMATOID ARTHRITIS
     Dates: start: 20070701, end: 20070801
  5. ARCOXIA [Concomitant]
  6. VALORON [Concomitant]
  7. VALARON RETARD [Concomitant]
  8. METOPROLOL SUCCINATE [Concomitant]
  9. FOLSAN [Concomitant]
  10. REKAWAN [Concomitant]
  11. FOSAMAX [Concomitant]
  12. NOVODIGAL MITE [Concomitant]
  13. IDEOS [Concomitant]
  14. PANTOPRAZOLE SODIUM [Concomitant]

REACTIONS (27)
  - ARTHRALGIA [None]
  - BONE DISORDER [None]
  - CARDIAC FAILURE [None]
  - CHEST PAIN [None]
  - ELECTROCARDIOGRAM ABNORMAL [None]
  - ELECTROCARDIOGRAM POOR R-WAVE PROGRESSION [None]
  - FOOT DEFORMITY [None]
  - GENERAL PHYSICAL HEALTH DETERIORATION [None]
  - HUMERUS FRACTURE [None]
  - HYPERTENSION [None]
  - INTERCOSTAL NEURALGIA [None]
  - JOINT DESTRUCTION [None]
  - JOINT EFFUSION [None]
  - KYPHOSIS [None]
  - LEFT VENTRICULAR HYPERTROPHY [None]
  - MUSCULOSKELETAL CHEST PAIN [None]
  - OEDEMA PERIPHERAL [None]
  - OSTEOPOROSIS [None]
  - PNEUMONIA [None]
  - PULMONARY EMBOLISM [None]
  - SEPSIS [None]
  - SINUS RHYTHM [None]
  - SKIN REACTION [None]
  - SPINAL COLUMN STENOSIS [None]
  - SPINAL DEFORMITY [None]
  - SPINAL FRACTURE [None]
  - TIBIA FRACTURE [None]
